FAERS Safety Report 4933542-0 (Version None)
Quarter: 2006Q1

REPORT INFORMATION
  Report Type: 
  Country: None (occurrence: None)
  Receive Date: 20060111
  Receipt Date: 20050513
  Transmission Date: 20060701
  Serious: No
  Sender: FDA-Public Use
  Company Number: A001-002-006490

PATIENT
  Age: 53 Year
  Sex: Female
  Weight: 78 kg

DRUGS (4)
  1. ARICEPT [Suspect]
     Indication: DEMENTIA ALZHEIMER'S TYPE
     Dosage: 10 MG, 1 IN 1 D, ORAL
     Route: 048
  2. FEROUS SULFATE [Concomitant]
  3. SERTRALINE [Concomitant]
  4. MULTIVITAMIN [Concomitant]

REACTIONS (2)
  - BRADYCARDIA [None]
  - SYNCOPE [None]
